FAERS Safety Report 9970323 (Version 2)
Quarter: 2014Q2

REPORT INFORMATION
  Report Type: Spontaneous
  Country: US (occurrence: US)
  Receive Date: 20140306
  Receipt Date: 20140425
  Transmission Date: 20141212
  Serious: Yes (Other)
  Sender: FDA-Public Use
  Company Number: US-ASTRAZENECA-2014SE15299

PATIENT
  Age: 55 Year
  Sex: Male
  Weight: 119.7 kg

DRUGS (10)
  1. LISINOPRIL [Suspect]
     Indication: HYPERTENSION
     Route: 048
     Dates: end: 201403
  2. CRESTOR [Suspect]
     Indication: BLOOD CHOLESTEROL ABNORMAL
     Route: 048
     Dates: start: 201311
  3. METFORMIN [Concomitant]
     Indication: DIABETES MELLITUS
     Route: 048
  4. GLIPIZIDE [Concomitant]
     Indication: DIABETES MELLITUS
     Route: 048
  5. GLIPIZIDE [Concomitant]
     Indication: DIABETES MELLITUS
     Route: 048
     Dates: start: 201401
  6. JANUBIA [Concomitant]
     Indication: DIABETES MELLITUS
     Route: 048
  7. DOXYSYCLINEN [Concomitant]
     Indication: ROSACEA
     Route: 048
  8. ASPIRIN [Concomitant]
     Indication: ISCHAEMIC HEART DISEASE PROPHYLAXIS
     Route: 048
  9. METRO GEL [Concomitant]
     Indication: ROSACEA
     Dosage: BID
     Dates: start: 2009
  10. DESEXIMETASONE [Concomitant]
     Indication: RASH
     Dosage: PRN
     Dates: start: 2009

REACTIONS (4)
  - Transient ischaemic attack [Unknown]
  - Disturbance in sexual arousal [Unknown]
  - Systemic lupus erythematosus [Unknown]
  - Visual acuity reduced [Unknown]
